FAERS Safety Report 19932905 (Version 1)
Quarter: 2021Q4

REPORT INFORMATION
  Report Type: Spontaneous
  Country: US (occurrence: US)
  Receive Date: 20211006
  Receipt Date: 20211006
  Transmission Date: 20220303
  Serious: No
  Sender: FDA-Public Use
  Company Number: None

PATIENT

DRUGS (2)
  1. ZOLPIDEM [Suspect]
     Active Substance: ZOLPIDEM TARTRATE
  2. PREDNISONE [Suspect]
     Active Substance: PREDNISONE

REACTIONS (7)
  - Drug monitoring procedure not performed [None]
  - Product label on wrong product [None]
  - Wrong product administered [None]
  - Product dispensing error [None]
  - Asthenia [None]
  - Hallucination [None]
  - Fall [None]
